FAERS Safety Report 14559840 (Version 1)
Quarter: 2018Q1

REPORT INFORMATION
  Report Type: Spontaneous
  Country: US (occurrence: US)
  Receive Date: 20180220
  Receipt Date: 20180220
  Transmission Date: 20180509
  Serious: No
  Sender: FDA-Public Use
  Company Number: None

PATIENT
  Age: 58 Year
  Sex: Female
  Weight: 68.85 kg

DRUGS (6)
  1. ARMOUR THYROID [Concomitant]
     Active Substance: THYROID, PORCINE
  2. DOXYCYCLINE. [Suspect]
     Active Substance: DOXYCYCLINE
     Indication: RASH
     Dosage: ?          QUANTITY:1 CAPSULE(S);?
     Route: 048
     Dates: start: 20180205, end: 20180213
  3. MULTI VITAMIN [Concomitant]
     Active Substance: VITAMINS
  4. FISH OIL [Concomitant]
     Active Substance: FISH OIL
  5. PROGESTERONE. [Concomitant]
     Active Substance: PROGESTERONE
  6. ESTROGEN [Concomitant]
     Active Substance: ESTROGENS

REACTIONS (3)
  - Vaginal discharge [None]
  - Oropharyngeal pain [None]
  - Cough [None]

NARRATIVE: CASE EVENT DATE: 20180207
